FAERS Safety Report 7973231-1 (Version None)
Quarter: 2011Q4

REPORT INFORMATION
  Report Type: 
  Country: None (occurrence: None)
  Receive Date: 20111213
  Receipt Date: 20111208
  Transmission Date: 20120403
  Serious: Yes (Death, Other)
  Sender: FDA-Public Use
  Company Number: PHHY2011CA59476

PATIENT
  Sex: Male

DRUGS (5)
  1. PHENERGAN [Suspect]
     Dosage: 50 TO 100 MG Q HS
     Dates: start: 20071123
  2. LIPITOR [Concomitant]
     Dosage: 10 MG, UNK
     Dates: start: 20090224
  3. CLOZARIL [Suspect]
     Indication: SCHIZOPHRENIA
     Dosage: 700 MG, UNK
     Route: 048
     Dates: start: 19920330
  4. INDERAL [Suspect]
     Dosage: 40 MG, TID
     Dates: start: 20071123
  5. ZYPREXA [Suspect]
     Dosage: 20 MG, QHS
     Dates: start: 20090224

REACTIONS (2)
  - ANTIPSYCHOTIC DRUG LEVEL INCREASED [None]
  - DEATH [None]
